FAERS Safety Report 6651146-9 (Version None)
Quarter: 2010Q1

REPORT INFORMATION
  Report Type: 
  Country: None (occurrence: None)
  Receive Date: 20100325
  Receipt Date: 20100316
  Transmission Date: 20100710
  Serious: Yes (Hospitalization)
  Sender: FDA-Public Use
  Company Number: US-BAXTER-2010BH007233

PATIENT
  Age: 9 Month
  Sex: Male

DRUGS (1)
  1. DIANEAL [Suspect]
     Indication: PERITONEAL DIALYSIS
     Route: 033
     Dates: end: 20100101

REACTIONS (6)
  - ABDOMINAL DISTENSION [None]
  - BREATH SOUNDS ABNORMAL [None]
  - DYSPNOEA [None]
  - PLEURAL EFFUSION [None]
  - ULTRAFILTRATION FAILURE [None]
  - WEIGHT INCREASED [None]
